FAERS Safety Report 5740469-3 (Version None)
Quarter: 2008Q2

REPORT INFORMATION
  Report Type: 
  Country: None (occurrence: None)
  Receive Date: 20080516
  Receipt Date: 20080428
  Transmission Date: 20081010
  Serious: Yes (Other)
  Sender: FDA-Public Use
  Company Number: BE-ASTRAZENECA-2008AC01078

PATIENT
  Age: 70 Year
  Sex: Female

DRUGS (1)
  1. TENORMIN MITIS [Suspect]
     Dosage: 50 MG
     Route: 048

REACTIONS (3)
  - DEPRESSED MOOD [None]
  - DISSOCIATION [None]
  - VERTIGO [None]
